FAERS Safety Report 23419831 (Version 2)
Quarter: 2024Q1

REPORT INFORMATION
  Report Type: Spontaneous
  Country: JP (occurrence: JP)
  Receive Date: 20240119
  Receipt Date: 20240206
  Transmission Date: 20240410
  Serious: Yes (Hospitalization, Other)
  Sender: FDA-Public Use
  Company Number: JP-GLAXOSMITHKLINE-JP2024JPN005897

PATIENT

DRUGS (7)
  1. FLUTICASONE FUROATE\VILANTEROL TRIFENATATE [Suspect]
     Active Substance: FLUTICASONE FUROATE\VILANTEROL TRIFENATATE
     Indication: Asthma
     Dosage: 200 ?G, 1 INHALATION DAILY
     Route: 055
     Dates: start: 20231110, end: 20231113
  2. RAPIACTA [Concomitant]
     Active Substance: PERAMIVIR
     Dosage: UNK
     Dates: start: 20231109
  3. AMPICILLIN SODIUM\SULBACTAM SODIUM [Concomitant]
     Active Substance: AMPICILLIN SODIUM\SULBACTAM SODIUM
     Dosage: UNK
     Dates: start: 20231109
  4. AMINOPHYLLINE [Concomitant]
     Active Substance: AMINOPHYLLINE
     Dosage: UNK
     Dates: start: 20231109
  5. SOLU-MEDROL [Concomitant]
     Active Substance: METHYLPREDNISOLONE SODIUM SUCCINATE
     Dosage: UNK
     Dates: start: 20231109, end: 20231113
  6. TULOBUTEROL [Concomitant]
     Active Substance: TULOBUTEROL
     Dosage: UNK
     Dates: start: 20231109
  7. PROCATEROL HYDROCHLORIDE [Concomitant]
     Active Substance: PROCATEROL HYDROCHLORIDE
     Dosage: UNK
     Dates: start: 20231109

REACTIONS (3)
  - Electrocardiogram QT prolonged [Recovered/Resolved]
  - Pain [Unknown]
  - Chest pain [Unknown]

NARRATIVE: CASE EVENT DATE: 20231110
